FAERS Safety Report 4303215-6 (Version None)
Quarter: 2004Q1

REPORT INFORMATION
  Report Type: 
  Country: None (occurrence: None)
  Receive Date: 20040223
  Receipt Date: 20040209
  Transmission Date: 20041129
  Serious: Yes (Death)
  Sender: FDA-Public Use
  Company Number: US-JNJFOC-20040102211

PATIENT
  Age: 84 Year
  Sex: Female
  Weight: 48.5349 kg

DRUGS (6)
  1. RISPERDAL [Suspect]
     Dosage: 0.5 MG, 1 IN 1 DAY, ORAL
     Route: 048
  2. PRINIVIL [Concomitant]
  3. AUGMENTIN [Concomitant]
  4. EFFEXOR XR [Concomitant]
  5. COMBIVENT [Concomitant]
  6. NICODERM [Concomitant]

REACTIONS (14)
  - AGITATION [None]
  - ANAEMIA [None]
  - BLOOD IRON DECREASED [None]
  - BODY TEMPERATURE INCREASED [None]
  - COUGH [None]
  - CYSTITIS [None]
  - DYSPNOEA [None]
  - ENTEROCOCCAL INFECTION [None]
  - NEOPLASM [None]
  - OXYGEN SATURATION DECREASED [None]
  - PNEUMONIA ASPIRATION [None]
  - TACHYPNOEA [None]
  - TREATMENT NONCOMPLIANCE [None]
  - UPPER GASTROINTESTINAL HAEMORRHAGE [None]
